FAERS Safety Report 19965056 (Version 4)
Quarter: 2021Q4

REPORT INFORMATION
  Report Type: Spontaneous
  Country: US (occurrence: US)
  Receive Date: 20211018
  Receipt Date: 20211210
  Transmission Date: 20220303
  Serious: No
  Sender: FDA-Public Use
  Company Number: US-GLAXOSMITHKLINE-US2021211315

PATIENT
  Age: 71 Year
  Sex: Female

DRUGS (3)
  1. ZEJULA [Suspect]
     Active Substance: NIRAPARIB
     Indication: Ovarian cancer
     Dosage: 200 MG, QD
     Route: 048
     Dates: start: 20210923, end: 20211010
  2. ZEJULA [Suspect]
     Active Substance: NIRAPARIB
     Dosage: 100 MG, QD
     Route: 048
     Dates: start: 20211105
  3. AVASTIN [Concomitant]
     Active Substance: BEVACIZUMAB
     Indication: Product used for unknown indication
     Dosage: UNK
     Route: 042
     Dates: start: 20211104

REACTIONS (14)
  - Blood pressure increased [Recovering/Resolving]
  - Tongue ulceration [Unknown]
  - Pharyngeal ulceration [Unknown]
  - Constipation [Unknown]
  - Platelet count decreased [Recovering/Resolving]
  - Carbohydrate antigen 125 increased [Unknown]
  - Aphasia [Unknown]
  - Oral discomfort [Unknown]
  - Dysphagia [Unknown]
  - Palpitations [Unknown]
  - Cardiac discomfort [Unknown]
  - Tremor [Unknown]
  - Malaise [Unknown]
  - Platelet disorder [Unknown]

NARRATIVE: CASE EVENT DATE: 20210901
